FAERS Safety Report 24411418 (Version 1)
Quarter: 2024Q4

REPORT INFORMATION
  Report Type: Spontaneous
  Country: US (occurrence: None)
  Receive Date: 20241007
  Receipt Date: 20241007
  Transmission Date: 20250115
  Serious: No
  Sender: Public
  Company Number: None

PATIENT
  Age: 79 Year
  Sex: Male

DRUGS (1)
  1. AMIODARONE HYDROCHLORIDE [Suspect]
     Active Substance: AMIODARONE HYDROCHLORIDE
     Dosage: FREQUENCY : DAILY;?
     Route: 048
     Dates: start: 20240320

REACTIONS (8)
  - Pulmonary toxicity [None]
  - Atrial fibrillation [None]
  - Sepsis [None]
  - Pneumonia [None]
  - Pleural effusion [None]
  - Syncope [None]
  - Respiratory distress [None]
  - Pneumonitis [None]

NARRATIVE: CASE EVENT DATE: 20240430
